FAERS Safety Report 8777280 (Version 2)
Quarter: 2012Q4

REPORT INFORMATION
  Report Type: 
  Country: US (occurrence: US)
  Receive Date: 20120911
  Receipt Date: 20120926
  Transmission Date: 20130627
  Serious: Yes (Death, Other)
  Sender: FDA-Public Use
  Company Number: US-PFIZER INC-2012221621

PATIENT
  Sex: Female

DRUGS (2)
  1. CYTOTEC [Suspect]
     Indication: INDUCED LABOUR
     Dosage: UNK
     Dates: start: 20011228
  2. MISOPROSTOL [Suspect]
     Indication: INDUCED LABOUR
     Dosage: UNK
     Dates: start: 20011228

REACTIONS (3)
  - Off label use [Fatal]
  - Death [Fatal]
  - Foetal death [Fatal]
